FAERS Safety Report 14461420 (Version 5)
Quarter: 2022Q2

REPORT INFORMATION
  Report Type: Report from Study
  Country: FR (occurrence: FR)
  Receive Date: 20180130
  Receipt Date: 20220425
  Transmission Date: 20220721
  Serious: Yes (Hospitalization)
  Sender: FDA-Public Use
  Company Number: FR-SHIRE-2017BLT004604

PATIENT
  Age: 5 Year
  Sex: Male
  Weight: 21.1 kg

DRUGS (9)
  1. METHOTREXATE [Suspect]
     Active Substance: METHOTREXATE
     Indication: Acute lymphocytic leukaemia
     Route: 037
     Dates: start: 20170118, end: 20170315
  2. VINCRISTINE [Suspect]
     Active Substance: VINCRISTINE
     Indication: Acute lymphocytic leukaemia
     Route: 042
     Dates: start: 20170117, end: 20170321
  3. MERCAPTOPURINE [Suspect]
     Active Substance: MERCAPTOPURINE
     Indication: Acute lymphocytic leukaemia
     Route: 048
     Dates: start: 20170117, end: 20170404
  4. DEXAMETHASONE [Suspect]
     Active Substance: DEXAMETHASONE
     Indication: Acute lymphocytic leukaemia
     Route: 048
     Dates: start: 20170117, end: 20170318
  5. PEGASPARGASE [Suspect]
     Active Substance: PEGASPARGASE
     Indication: Acute lymphocytic leukaemia
     Dosage: 2100 IU (INTERNATIONAL UNIT) DAILY;
     Route: 042
     Dates: start: 20170124, end: 20170321
  6. PEGASPARGASE [Suspect]
     Active Substance: PEGASPARGASE
     Dosage: 2100 IU (INTERNATIONAL UNIT) DAILY; 2100 IU
     Route: 042
     Dates: start: 20170321, end: 20170321
  7. METHOTREXATE [Suspect]
     Active Substance: METHOTREXATE
     Indication: Acute lymphocytic leukaemia
     Dosage: 20 MG
     Route: 048
     Dates: start: 20170124, end: 20170404
  8. POLYETHYLENE GLYCOL 4000 [Concomitant]
     Active Substance: POLYETHYLENE GLYCOL 4000
     Indication: Product used for unknown indication
     Route: 065
  9. NUTRINI ENERGY MULTI FIBER [Concomitant]
     Indication: Product used for unknown indication
     Route: 065

REACTIONS (1)
  - Hypertension [Recovered/Resolved]

NARRATIVE: CASE EVENT DATE: 20170402
